FAERS Safety Report 24547540 (Version 1)
Quarter: 2024Q4

REPORT INFORMATION
  Report Type: Report from Study
  Country: NL (occurrence: NL)
  Receive Date: 20241025
  Receipt Date: 20241025
  Transmission Date: 20250115
  Serious: Yes (Hospitalization, Other)
  Sender: EMD SERONO INC
  Company Number: NL-Merck Healthcare KGaA-2024053916

PATIENT
  Age: 50 Year
  Sex: Male

DRUGS (1)
  1. MAVENCLAD [Suspect]
     Active Substance: CLADRIBINE
     Indication: Relapsing-remitting multiple sclerosis
     Dosage: WEEK ONE THERAPY
     Route: 048
     Dates: start: 20241001

REACTIONS (2)
  - Loss of consciousness [Unknown]
  - Migraine [Recovered/Resolved]
